FAERS Safety Report 9657852 (Version 1)
Quarter: 2013Q4

REPORT INFORMATION
  Report Type: Spontaneous
  Country: US (occurrence: US)
  Receive Date: 20131030
  Receipt Date: 20131030
  Transmission Date: 20140711
  Serious: Yes (Other)
  Sender: FDA-Public Use
  Company Number: US-TEVA-440369USA

PATIENT
  Sex: Male
  Weight: 124.85 kg

DRUGS (5)
  1. PROVIGIL [Suspect]
     Indication: SLEEP APNOEA SYNDROME
     Route: 048
     Dates: end: 201309
  2. SINEMET [Concomitant]
     Indication: PARKINSON^S DISEASE
  3. DIOVAN HCT [Concomitant]
     Indication: HYPERTENSION
  4. NORCO [Concomitant]
     Indication: BACK PAIN
  5. TAMSULOSIN [Concomitant]
     Indication: BLADDER DISORDER

REACTIONS (4)
  - Dermatitis bullous [Not Recovered/Not Resolved]
  - Gingival bleeding [Unknown]
  - Skin exfoliation [Not Recovered/Not Resolved]
  - Drug ineffective [Unknown]
